FAERS Safety Report 7730110-2 (Version None)
Quarter: 2011Q3

REPORT INFORMATION
  Report Type: 
  Country: None (occurrence: None)
  Receive Date: 20110906
  Receipt Date: 20110830
  Transmission Date: 20111222
  Serious: Yes (Other)
  Sender: FDA-Public Use
  Company Number: FR-ROCHE-800168

PATIENT
  Sex: Female

DRUGS (2)
  1. BEVACIZUMAB [Suspect]
     Dosage: LAST DOSE PRIOR TO SAE: 03 MARCH 2011
     Route: 065
     Dates: start: 20101028
  2. EXEMESTANE [Suspect]
     Dosage: LAST DOSE PRIOR TO SAE: 03 MARCH 2011, PERMANENTLY DISCONTINUED
     Route: 065
     Dates: start: 20101028, end: 20110323

REACTIONS (1)
  - BLOOD BILIRUBIN INCREASED [None]
